FAERS Safety Report 8032123-2 (Version None)
Quarter: 2012Q1

REPORT INFORMATION
  Report Type: 
  Country: None (occurrence: None)
  Receive Date: 20120109
  Receipt Date: 20111229
  Transmission Date: 20120608
  Serious: Yes (Other)
  Sender: FDA-Public Use
  Company Number: US-ASTRAZENECA-2012SE00038

PATIENT
  Age: 51 Year
  Sex: Female

DRUGS (1)
  1. NEXIUM [Suspect]
     Route: 048

REACTIONS (5)
  - BACK INJURY [None]
  - MIGRAINE [None]
  - ROAD TRAFFIC ACCIDENT [None]
  - NECK INJURY [None]
  - SPINAL CORD INJURY [None]
